FAERS Safety Report 7580893-X (Version None)
Quarter: 2011Q2

REPORT INFORMATION
  Report Type: 
  Country: None (occurrence: None)
  Receive Date: 20110629
  Receipt Date: 20110624
  Transmission Date: 20111010
  Serious: Yes (Disabling)
  Sender: FDA-Public Use
  Company Number: GB-MERCK-1106GBR00110

PATIENT
  Age: 70 Year
  Sex: Male
  Weight: 105 kg

DRUGS (11)
  1. CLOMIPRAMINE HYDROCHLORIDE [Concomitant]
     Route: 065
     Dates: start: 20110125
  2. GLICLAZIDE [Concomitant]
     Route: 065
     Dates: start: 20110125
  3. WARFARIN SODIUM [Concomitant]
     Route: 065
     Dates: start: 20110125
  4. BENDROFLUMETHIAZIDE [Concomitant]
     Route: 065
     Dates: start: 20110125
  5. BUMETANIDE [Concomitant]
     Route: 065
     Dates: start: 20110315
  6. METFORMIN [Concomitant]
     Route: 065
     Dates: start: 20100413
  7. ACETAMINOPHEN [Concomitant]
     Route: 065
     Dates: start: 20110315
  8. JANUVIA [Suspect]
     Route: 048
     Dates: start: 20110603
  9. IRBESARTAN [Concomitant]
     Route: 065
     Dates: start: 20110125
  10. OMEPRAZOLE [Concomitant]
     Route: 065
     Dates: start: 20110125
  11. ATENOLOL [Concomitant]
     Route: 065
     Dates: start: 20110125

REACTIONS (1)
  - MYALGIA [None]
